FAERS Safety Report 17857412 (Version 1)
Quarter: 2020Q2

REPORT INFORMATION
  Report Type: Spontaneous
  Country: CA (occurrence: CA)
  Receive Date: 20200603
  Receipt Date: 20200603
  Transmission Date: 20200714
  Serious: Yes (Hospitalization, Other)
  Sender: FDA-Public Use
  Company Number: CA-B.I. PHARMACEUTICALS,INC./RIDGEFIELD-2020-BI-027417

PATIENT
  Age: 70 Year
  Sex: Female

DRUGS (13)
  1. AMANTADINE. [Suspect]
     Active Substance: AMANTADINE HYDROCHLORIDE
     Indication: PARKINSON^S DISEASE
  2. MIRAPEX [Suspect]
     Active Substance: PRAMIPEXOLE DIHYDROCHLORIDE
     Indication: PARKINSON^S DISEASE
     Route: 065
  3. MIRAPEX [Suspect]
     Active Substance: PRAMIPEXOLE DIHYDROCHLORIDE
     Route: 065
  4. CLOZAPINE. [Suspect]
     Active Substance: CLOZAPINE
     Indication: PSYCHOTIC DISORDER
     Route: 065
  5. NABILONE [Suspect]
     Active Substance: NABILONE
     Route: 065
  6. QUETIAPINE. [Suspect]
     Active Substance: QUETIAPINE
     Indication: PSYCHOTIC DISORDER
     Route: 065
  7. MIRAPEX [Suspect]
     Active Substance: PRAMIPEXOLE DIHYDROCHLORIDE
     Route: 065
  8. CLOZAPINE. [Suspect]
     Active Substance: CLOZAPINE
     Indication: PARKINSON^S DISEASE
     Route: 065
  9. FLUDROCORTISONE [Suspect]
     Active Substance: FLUDROCORTISONE
     Indication: PSYCHOTIC DISORDER
     Route: 065
  10. NABILONE [Suspect]
     Active Substance: NABILONE
     Indication: PARKINSON^S DISEASE
     Route: 048
  11. AMANTADINE. [Suspect]
     Active Substance: AMANTADINE HYDROCHLORIDE
     Indication: PSYCHOTIC DISORDER
     Route: 065
  12. CARBIDOPA/LEVODOPA [Suspect]
     Active Substance: CARBIDOPA\LEVODOPA
     Indication: PARKINSON^S DISEASE
     Route: 065
  13. ENTACAPONE. [Suspect]
     Active Substance: ENTACAPONE
     Indication: PARKINSON^S DISEASE
     Route: 065

REACTIONS (8)
  - Therapeutic response shortened [Unknown]
  - Psychotic disorder [Unknown]
  - Acute psychosis [Unknown]
  - Dystonia [Unknown]
  - Parkinson^s disease psychosis [Unknown]
  - Orthostatic hypotension [Unknown]
  - Therapeutic product effect incomplete [Unknown]
  - Dyskinesia [Unknown]
